FAERS Safety Report 6384081-4 (Version None)
Quarter: 2009Q3

REPORT INFORMATION
  Report Type: 
  Country: None (occurrence: None)
  Receive Date: 20090929
  Receipt Date: 20090915
  Transmission Date: 20100115
  Serious: Yes (Life-Threatening, Hospitalization)
  Sender: FDA-Public Use
  Company Number: PAR_03191_2009

PATIENT
  Age: 76 Year
  Sex: Male
  Weight: 85 kg

DRUGS (11)
  1. IBUPROFEN [Suspect]
     Indication: PAIN
     Dosage: (800 MG BID ORAL)
     Route: 048
     Dates: start: 20090311, end: 20090624
  2. ASS (ASS - ACETYLSALICYLIC ACID) (NOT SPECIFIED) [Suspect]
     Indication: CORONARY ARTERY DISEASE
     Dosage: (100 MG QD ORAL)
     Route: 048
     Dates: start: 20090311
  3. METFORMIN (METFORMIN) 1000 MG [Suspect]
     Indication: TYPE 2 DIABETES MELLITUS
     Dosage: (1000 MG BID ORAL)
     Route: 048
     Dates: start: 20090311, end: 20090624
  4. XIPAMIDE (XIPAMIDE) 10 MG [Suspect]
     Indication: HYPERTENSION
     Dosage: (10 MG QD ORAL)
     Route: 048
     Dates: start: 20090311
  5. ACTRAPID /00030501/ [Concomitant]
  6. DIGITOXIN INJ [Concomitant]
  7. PROTAPHANE MC /00030504/ [Concomitant]
  8. SIMVASTATIN [Concomitant]
  9. PENTAERYTHRITOL TETRANITRATE [Concomitant]
  10. OEMPRAZOL /00661201/ [Concomitant]
  11. BISOPROLOL [Concomitant]

REACTIONS (15)
  - AORTIC ARTERIOSCLEROSIS [None]
  - ASTHENIA [None]
  - BLOOD GLUCOSE INCREASED [None]
  - BLOOD PRESSURE SYSTOLIC INCREASED [None]
  - CORONARY ARTERY STENOSIS [None]
  - DRUG INTERACTION [None]
  - DYSPNOEA [None]
  - HAEMODIALYSIS [None]
  - HEPATIC STEATOSIS [None]
  - HYPERKALAEMIA [None]
  - NIGHT SWEATS [None]
  - RENAL ARTERIOSCLEROSIS [None]
  - RENAL FAILURE ACUTE [None]
  - RENAL FAILURE CHRONIC [None]
  - SICK SINUS SYNDROME [None]
